FAERS Safety Report 12527567 (Version 1)
Quarter: 2016Q3

REPORT INFORMATION
  Report Type: Report from Study
  Country: CU (occurrence: CU)
  Receive Date: 20160705
  Receipt Date: 20160705
  Transmission Date: 20161109
  Serious: Yes (Other)
  Sender: FDA-Public Use
  Company Number: CU-ROCHE-1786001

PATIENT
  Age: 81 Year
  Sex: Male

DRUGS (2)
  1. TRIAMCINOLONA [Suspect]
     Active Substance: TRIAMCINOLONE ACETONIDE
     Indication: DIABETIC RETINAL OEDEMA
     Dosage: 4 MG IN 0.1 ML
     Route: 050
  2. BEVACIZUMAB [Suspect]
     Active Substance: BEVACIZUMAB
     Indication: DIABETIC RETINAL OEDEMA
     Dosage: 1.25 MG IN 0.05 ML
     Route: 050

REACTIONS (1)
  - Ocular hypertension [Unknown]
